FAERS Safety Report 26113902 (Version 1)
Quarter: 2025Q4

REPORT INFORMATION
  Report Type: Spontaneous
  Country: US (occurrence: US)
  Receive Date: 20251202
  Receipt Date: 20251202
  Transmission Date: 20260117
  Serious: Yes (Other)
  Sender: BIOMARIN
  Company Number: US-SA-2025SA350209

PATIENT
  Age: 18 Year
  Sex: Male

DRUGS (1)
  1. LARONIDASE [Suspect]
     Active Substance: LARONIDASE
     Indication: Mucopolysaccharidosis I
     Dosage: 46.4 (UNITS UNSPECIFIED), QW
     Dates: start: 201109

REACTIONS (9)
  - Corneal opacity [Unknown]
  - Spinal cord compression [Unknown]
  - Pituitary tumour [Unknown]
  - Knee operation [Unknown]
  - Anxiety [Unknown]
  - Depression [Unknown]
  - Road traffic accident [Unknown]
  - Hand deformity [Unknown]
  - Scoliosis [Unknown]
